FAERS Safety Report 24834328 (Version 1)
Quarter: 2025Q1

REPORT INFORMATION
  Report Type: Spontaneous
  Country: US (occurrence: None)
  Receive Date: 20250110
  Receipt Date: 20250110
  Transmission Date: 20250408
  Serious: No
  Sender: FDA-CTU
  Company Number: None

PATIENT
  Age: 73 Year
  Sex: Male
  Weight: 115 kg

DRUGS (1)
  1. CEFIDEROCOL [Suspect]
     Active Substance: CEFIDEROCOL
     Indication: Upper respiratory tract infection
     Route: 042
     Dates: start: 20240914, end: 20241002

REACTIONS (3)
  - Anaemia [None]
  - Thrombocytopenia [None]
  - Pneumonitis aspiration [None]

NARRATIVE: CASE EVENT DATE: 20241006
